FAERS Safety Report 16141247 (Version 1)
Quarter: 2019Q2

REPORT INFORMATION
  Report Type: Spontaneous
  Country: GB (occurrence: GB)
  Receive Date: 20190401
  Receipt Date: 20190401
  Transmission Date: 20190711
  Serious: Yes (Hospitalization)
  Sender: FDA-Public Use
  Company Number: GB-MYLANLABS-2019M1028517

PATIENT
  Age: 86 Year

DRUGS (7)
  1. MEMANTINE. [Suspect]
     Active Substance: MEMANTINE
     Indication: PRODUCT USED FOR UNKNOWN INDICATION
     Dosage: UNK
     Dates: end: 20180323
  2. APIXABAN [Concomitant]
     Active Substance: APIXABAN
     Dosage: 5 MILLIGRAM, QD
  3. PRAVASTATIN. [Concomitant]
     Active Substance: PRAVASTATIN
     Dosage: UNK
  4. PRAVASTATIN. [Concomitant]
     Active Substance: PRAVASTATIN
     Dosage: 40 MILLIGRAM, QD
  5. LAXIDO [Concomitant]
     Active Substance: POLYETHYLENE GLYCOL 3350\POTASSIUM CHLORIDE\SODIUM BICARBONATE\SODIUM CHLORIDE
     Dosage: 1 OR 2 SACHETS AS NECCESSARY
  6. MEMANTINE. [Suspect]
     Active Substance: MEMANTINE
     Dosage: RESTARTED 17 DAYS AFTER ADVERSE REACTION
  7. CANDESARTAN. [Concomitant]
     Active Substance: CANDESARTAN
     Dosage: 8 MILLIGRAM, QD

REACTIONS (2)
  - Bradycardia [Recovered/Resolved]
  - Atrial fibrillation [Unknown]

NARRATIVE: CASE EVENT DATE: 20180323
